FAERS Safety Report 22070318 (Version 1)
Quarter: 2023Q1

REPORT INFORMATION
  Report Type: Report from Study
  Country: US (occurrence: None)
  Receive Date: 20230307
  Receipt Date: 20230307
  Transmission Date: 20230418
  Serious: Yes (Other)
  Sender: FDA-Public Use
  Company Number: US-Eisai Medical Research-EC-2023-135464

PATIENT
  Age: 79 Year
  Sex: Male
  Weight: 112 kg

DRUGS (23)
  1. LENVIMA [Suspect]
     Active Substance: LENVATINIB
     Indication: Thyroid cancer
     Route: 048
     Dates: start: 202208, end: 2022
  2. LENVIMA [Suspect]
     Active Substance: LENVATINIB
     Route: 048
     Dates: end: 2023
  3. LENVIMA [Suspect]
     Active Substance: LENVATINIB
     Dosage: DOSE REDUCED (DOSE UNKNOWN)
     Route: 048
     Dates: start: 2023
  4. ZINC GLUCONATE [Concomitant]
     Active Substance: ZINC GLUCONATE
  5. TRAMADOL HCL [Concomitant]
     Active Substance: TRAMADOL HYDROCHLORIDE
  6. SPIRONOLACTONE [Concomitant]
     Active Substance: SPIRONOLACTONE
  7. PROCHLORPERAZINE MALEATE [Concomitant]
     Active Substance: PROCHLORPERAZINE MALEATE
  8. ONDANSETRON HCL [Concomitant]
     Active Substance: ONDANSETRON HYDROCHLORIDE
  9. LOPERAMIDE [Concomitant]
     Active Substance: LOPERAMIDE
  10. LEVOTHYROXINE [Concomitant]
     Active Substance: LEVOTHYROXINE
  11. NOVOLOG MIX FLEXPEN [Concomitant]
  12. HYDRALAZINE HCL [Concomitant]
     Active Substance: HYDRALAZINE HYDROCHLORIDE
  13. FUROSEMIDE [Concomitant]
     Active Substance: FUROSEMIDE
  14. FISH OIL [Concomitant]
     Active Substance: FISH OIL
  15. PROSCAR [Concomitant]
     Active Substance: FINASTERIDE
  16. FENOFIBRATE [Concomitant]
     Active Substance: FENOFIBRATE
  17. CALCIUM [Concomitant]
     Active Substance: CALCIUM
  18. ASPIRIN [Concomitant]
     Active Substance: ASPIRIN
  19. AMLODIPINE BESYLATE [Concomitant]
     Active Substance: AMLODIPINE BESYLATE
  20. CHOLECALCIFEROL CRYSTALS [Concomitant]
  21. CARVEDILOL [Concomitant]
     Active Substance: CARVEDILOL
  22. CALCITRIOL [Concomitant]
     Active Substance: CALCITRIOL
  23. ATORVASTATIN [Concomitant]
     Active Substance: ATORVASTATIN

REACTIONS (2)
  - Renal failure [Unknown]
  - Dehydration [Unknown]

NARRATIVE: CASE EVENT DATE: 20220101
